FAERS Safety Report 6847509-9 (Version None)
Quarter: 2010Q3

REPORT INFORMATION
  Report Type: 
  Country: None (occurrence: None)
  Receive Date: 20100716
  Receipt Date: 20100706
  Transmission Date: 20110219
  Serious: Yes (Death, Other)
  Sender: FDA-Public Use
  Company Number: US-PFIZER INC-2010084848

PATIENT
  Sex: Female
  Weight: 73 kg

DRUGS (9)
  1. ZOLOFT [Suspect]
     Indication: SCHIZOPHRENIA
     Dosage: UNK
  2. ZOLOFT [Suspect]
     Indication: POST-TRAUMATIC STRESS DISORDER
  3. ZOLOFT [Suspect]
     Indication: GENERALISED ANXIETY DISORDER
  4. ZOLOFT [Suspect]
     Indication: DEPRESSION
  5. HYDROCHLOROTHIAZIDE [Concomitant]
     Dosage: 25 MG, UNK
  6. BUSPAR [Concomitant]
     Dosage: 15 MG, 2X/DAY
  7. IBUPROFEN [Concomitant]
     Dosage: 600 MG, AS NEEDED
  8. TRAZODONE [Concomitant]
     Dosage: 100 MG, UNK
  9. ALESSE [Concomitant]
     Dosage: UNK

REACTIONS (2)
  - DEATH [None]
  - DRUG LEVEL INCREASED [None]
